FAERS Safety Report 4366763-9 (Version None)
Quarter: 2004Q2

REPORT INFORMATION
  Report Type: 
  Country: None (occurrence: None)
  Receive Date: 20040528
  Receipt Date: 20040506
  Transmission Date: 20050107
  Serious: Yes (Death, Hospitalization)
  Sender: FDA-Public Use
  Company Number: PHBS2004BE06184

PATIENT
  Age: 54 Year
  Sex: Female

DRUGS (8)
  1. ZOMETA [Suspect]
     Indication: BREAST CANCER
     Dosage: 4 MG
     Route: 065
     Dates: start: 20040428
  2. IMURAN [Suspect]
     Indication: CROHN'S DISEASE
     Route: 065
     Dates: start: 19890101
  3. INDOCID RETARD [Concomitant]
     Route: 065
     Dates: start: 20040504
  4. CORTICOSTEROID NOS [Concomitant]
     Dates: start: 20040504
  5. FEMARA [Suspect]
     Indication: BREAST CANCER
     Route: 065
     Dates: start: 20040423
  6. ENTOCORT EC [Concomitant]
     Indication: CROHN'S DISEASE
     Route: 065
     Dates: start: 19890101
  7. ZYLORIC ^FAES^ [Concomitant]
     Route: 065
  8. IMODIUM ^JANSSEN^ [Concomitant]
     Route: 065

REACTIONS (23)
  - ALANINE AMINOTRANSFERASE INCREASED [None]
  - ASPARTATE AMINOTRANSFERASE INCREASED [None]
  - ASPERGILLOSIS [None]
  - ASTHENIA [None]
  - BLOOD ALKALINE PHOSPHATASE INCREASED [None]
  - BLOOD BILIRUBIN ABNORMAL [None]
  - BLOOD LACTATE DEHYDROGENASE INCREASED [None]
  - CYTOMEGALOVIRUS INFECTION [None]
  - DIARRHOEA [None]
  - GAMMA-GLUTAMYLTRANSFERASE INCREASED [None]
  - HAEMOGLOBIN DECREASED [None]
  - HEPATIC FAILURE [None]
  - HYPOCALCAEMIA [None]
  - HYPOTENSION [None]
  - INFLUENZA LIKE ILLNESS [None]
  - JAUNDICE [None]
  - LEUKOPENIA [None]
  - MUSCLE CRAMP [None]
  - MYALGIA [None]
  - PANCYTOPENIA [None]
  - PYREXIA [None]
  - SHOCK [None]
  - THROMBOCYTOPENIA [None]
